FAERS Safety Report 4920368-7 (Version None)
Quarter: 2006Q1

REPORT INFORMATION
  Report Type: 
  Country: None (occurrence: None)
  Receive Date: 20060223
  Receipt Date: 20051114
  Transmission Date: 20060701
  Serious: Yes (Hospitalization)
  Sender: FDA-Public Use
  Company Number: US-MERCK-0511USA02690

PATIENT
  Age: 49 Year
  Sex: Female

DRUGS (1)
  1. VIOXX [Suspect]
     Route: 048

REACTIONS (13)
  - ADRENAL MASS [None]
  - BRONCHITIS [None]
  - CHRONIC OBSTRUCTIVE PULMONARY DISEASE [None]
  - DIABETES MELLITUS [None]
  - DIASTOLIC DYSFUNCTION [None]
  - HEADACHE [None]
  - HYPERTENSION [None]
  - HYPERTENSIVE CRISIS [None]
  - NOCTURNAL DYSPNOEA [None]
  - OEDEMA PERIPHERAL [None]
  - ORTHOPNOEA [None]
  - TOBACCO ABUSE [None]
  - VOLUME BLOOD INCREASED [None]
